FAERS Safety Report 14974845 (Version 2)
Quarter: 2018Q2

REPORT INFORMATION
  Report Type: Spontaneous
  Country: JP (occurrence: JP)
  Receive Date: 20180605
  Receipt Date: 20180611
  Transmission Date: 20180711
  Serious: Yes (Hospitalization)
  Sender: FDA-Public Use
  Company Number: JP-BRACCO-2018JP03004

PATIENT
  Age: 65 Year
  Sex: Male

DRUGS (1)
  1. PROHANCE [Suspect]
     Active Substance: GADOTERIDOL
     Indication: DIAGNOSTIC PROCEDURE
     Dosage: 17 ML, SINGLE
     Route: 042
     Dates: start: 20180501, end: 20180501

REACTIONS (1)
  - Shock [Recovered/Resolved]

NARRATIVE: CASE EVENT DATE: 20180501
